FAERS Safety Report 5059889-8 (Version None)
Quarter: 2006Q3

REPORT INFORMATION
  Report Type: 
  Country: None (occurrence: None)
  Receive Date: 20060718
  Receipt Date: 20060704
  Transmission Date: 20061208
  Serious: No
  Sender: FDA-Public Use
  Company Number: DK200607000181

PATIENT
  Age: 53 Year
  Sex: Male

DRUGS (4)
  1. DULOXETINE HYDROCHLORIDE (DULOXETINE HYDROCHLORIDE) CAPSULE [Suspect]
     Indication: DEPRESSION
     Dosage: 180 MG, DAILY (1/D), ORAL
     Route: 048
     Dates: start: 20060401
  2. ORABET (TOLBUTAMIDE) [Concomitant]
  3. LAMICTAL [Concomitant]
  4. REMERON [Concomitant]

REACTIONS (4)
  - ALANINE AMINOTRANSFERASE INCREASED [None]
  - ASPARTATE AMINOTRANSFERASE INCREASED [None]
  - GAMMA-GLUTAMYLTRANSFERASE INCREASED [None]
  - OVERDOSE [None]
